FAERS Safety Report 22332501 (Version 1)
Quarter: 2023Q2

REPORT INFORMATION
  Report Type: Spontaneous
  Country: IN (occurrence: IN)
  Receive Date: 20230517
  Receipt Date: 20230517
  Transmission Date: 20230722
  Serious: Yes (Other)
  Sender: FDA-Public Use
  Company Number: IN-002147023-NVSC2023IN108443

PATIENT
  Age: 33 Year
  Sex: Female

DRUGS (1)
  1. TASIGNA [Suspect]
     Active Substance: NILOTINIB
     Indication: Chronic myeloid leukaemia
     Dosage: 300 MG, BID (BY MOUTH)
     Route: 048
     Dates: start: 20230505

REACTIONS (4)
  - Peritoneal tuberculosis [Unknown]
  - Cytopenia [Unknown]
  - White blood cell count decreased [Unknown]
  - Pyrexia [Unknown]
